FAERS Safety Report 6581802-2 (Version None)
Quarter: 2010Q1

REPORT INFORMATION
  Report Type: 
  Country: None (occurrence: None)
  Receive Date: 20100215
  Receipt Date: 20100209
  Transmission Date: 20100710
  Serious: Yes (Death, Other)
  Sender: FDA-Public Use
  Company Number: PHHY2009JP38693

PATIENT
  Sex: Male

DRUGS (11)
  1. DIOVAN [Suspect]
     Indication: HYPERTENSION
     Dosage: 80 MG, QD
     Route: 048
     Dates: start: 20080406, end: 20081120
  2. ADALAT CC [Concomitant]
     Indication: HYPERTENSION
     Dosage: 40 MG, UNK
     Route: 048
     Dates: start: 20080405, end: 20081120
  3. EXCEGRAN [Concomitant]
     Dosage: 200 MG, UNK
     Route: 048
     Dates: start: 20080223, end: 20081120
  4. SELBEX [Concomitant]
     Dosage: 100 MG, UNK
     Route: 048
     Dates: start: 20080223, end: 20081120
  5. OMEPRAL [Concomitant]
     Dosage: 20 MG, UNK
     Route: 048
     Dates: start: 20080228, end: 20081120
  6. METHYLCOBALAMIN [Concomitant]
     Dosage: 1500 UG, UNK
     Route: 048
     Dates: start: 20080228, end: 20081120
  7. TIZANIDINE HCL [Concomitant]
     Dosage: 3 MG, UNK
     Route: 048
     Dates: start: 20080228, end: 20081120
  8. PREDONINE [Concomitant]
     Dosage: UNK
     Route: 048
     Dates: start: 20080302, end: 20081102
  9. PAXIL [Concomitant]
     Dosage: 10 MG, UNK
     Route: 048
     Dates: start: 20080331, end: 20081120
  10. DIGOXIN [Concomitant]
     Dosage: 0.125 MG, UNK
     Route: 048
     Dates: start: 20080416, end: 20081120
  11. ADALAT [Concomitant]
     Indication: HYPERTENSION
     Dosage: 40 MG, UNK
     Route: 048
     Dates: start: 20080223, end: 20080404

REACTIONS (7)
  - BLOOD ALKALINE PHOSPHATASE INCREASED [None]
  - BLOOD LACTATE DEHYDROGENASE INCREASED [None]
  - BLOOD PRESSURE DECREASED [None]
  - BRAIN TUMOUR OPERATION [None]
  - GAMMA-GLUTAMYLTRANSFERASE INCREASED [None]
  - HEART RATE DECREASED [None]
  - TACHYARRHYTHMIA [None]
